FAERS Safety Report 4478334-4 (Version None)
Quarter: 2004Q4

REPORT INFORMATION
  Report Type: 
  Country: None (occurrence: None)
  Receive Date: 20041019
  Receipt Date: 20041008
  Transmission Date: 20050328
  Serious: Yes (Other)
  Sender: FDA-Public Use
  Company Number: US-ABBOTT-04P-163-0276650-00

PATIENT
  Sex: Female
  Weight: 93.07 kg

DRUGS (4)
  1. SYNTHROID [Suspect]
     Indication: HYPOTHYROIDISM
     Route: 048
     Dates: start: 19900101, end: 19920101
  2. SYNTHROID [Suspect]
     Route: 048
     Dates: start: 19920101, end: 20000101
  3. MODURETIC 5-50 [Concomitant]
     Indication: FLUID RETENTION
     Route: 048
     Dates: start: 19900101
  4. LISINOPRIL [Concomitant]
     Indication: BLOOD PRESSURE
     Route: 048
     Dates: start: 19900101

REACTIONS (5)
  - ASTHENIA [None]
  - BLOOD THYROID STIMULATING HORMONE DECREASED [None]
  - HYPERTENSION [None]
  - JOINT EFFUSION [None]
  - WEIGHT INCREASED [None]
